FAERS Safety Report 13601384 (Version 1)
Quarter: 2017Q2

REPORT INFORMATION
  Report Type: Spontaneous
  Country: US (occurrence: US)
  Receive Date: 20170601
  Receipt Date: 20170601
  Transmission Date: 20170830
  Serious: Yes (Hospitalization)
  Sender: FDA-Public Use
  Company Number: None

PATIENT
  Age: 41 Year
  Sex: Male
  Weight: 102.6 kg

DRUGS (1)
  1. DILANTIN [Suspect]
     Active Substance: PHENYTOIN
     Indication: GENERALISED TONIC-CLONIC SEIZURE
     Dates: start: 20020501, end: 20170601

REACTIONS (5)
  - Dizziness [None]
  - Tooth loss [None]
  - Loss of consciousness [None]
  - Genital rash [None]
  - Fatigue [None]

NARRATIVE: CASE EVENT DATE: 20160925
